FAERS Safety Report 4871581-9 (Version None)
Quarter: 2005Q4

REPORT INFORMATION
  Report Type: 
  Country: None (occurrence: None)
  Receive Date: 20051230
  Receipt Date: 20051214
  Transmission Date: 20060501
  Serious: Yes (Death, Other)
  Sender: FDA-Public Use
  Company Number: AT200512002651

PATIENT
  Age: 9 Year
  Sex: Female

DRUGS (2)
  1. HUMATROPE [Suspect]
     Indication: PRADER-WILLI SYNDROME
     Dosage: SEE IMAGE
  2. HUMATROPE [Suspect]
     Indication: PRADER-WILLI SYNDROME
     Dosage: SEE IMAGE

REACTIONS (6)
  - GENERAL PHYSICAL HEALTH DETERIORATION [None]
  - HYPOVENTILATION [None]
  - MOBILITY DECREASED [None]
  - RESPIRATORY TRACT INFECTION [None]
  - SLEEP APNOEA SYNDROME [None]
  - TONSILLAR HYPERTROPHY [None]
